FAERS Safety Report 5387354-7 (Version None)
Quarter: 2007Q3

REPORT INFORMATION
  Report Type: 
  Country: None (occurrence: None)
  Receive Date: 20070716
  Receipt Date: 20070702
  Transmission Date: 20080115
  Serious: Yes (Hospitalization, Other)
  Sender: FDA-Public Use
  Company Number: US-ELI_LILLY_AND_COMPANY-US200707000423

PATIENT
  Sex: Female

DRUGS (1)
  1. FORTEO [Suspect]
     Indication: OSTEOPOROSIS
     Dosage: UNK, EACH MORNING
     Dates: start: 20060501

REACTIONS (6)
  - BLOOD CALCIUM INCREASED [None]
  - CONTUSION [None]
  - LOSS OF CONSCIOUSNESS [None]
  - NECK INJURY [None]
  - NECK PAIN [None]
  - TOOTHACHE [None]
